FAERS Safety Report 18669826 (Version 1)
Quarter: 2020Q4

REPORT INFORMATION
  Report Type: Spontaneous
  Country: PL (occurrence: PL)
  Receive Date: 20201228
  Receipt Date: 20201228
  Transmission Date: 20210114
  Serious: Yes (Death)
  Sender: FDA-Public Use
  Company Number: PL-BAYER-2020-281790

PATIENT
  Age: 81 Year
  Sex: Male
  Weight: 80 kg

DRUGS (2)
  1. GADOVIST [Suspect]
     Active Substance: GADOBUTROL
     Indication: PROSTATE CANCER
     Dosage: 7.5 ML, ONCE
     Route: 042
     Dates: start: 20201203, end: 20201203
  2. GADOVIST [Suspect]
     Active Substance: GADOBUTROL
     Indication: MAGNETIC RESONANCE IMAGING

REACTIONS (5)
  - Cough [Fatal]
  - Dyspnoea [Fatal]
  - Cardiac arrest [Fatal]
  - Syncope [Fatal]
  - Skin discolouration [Fatal]

NARRATIVE: CASE EVENT DATE: 20201203
